FAERS Safety Report 4854448-1 (Version None)
Quarter: 2005Q4

REPORT INFORMATION
  Report Type: 
  Country: None (occurrence: None)
  Receive Date: 20051213
  Receipt Date: 20051125
  Transmission Date: 20060501
  Serious: Yes (Life-Threatening, Hospitalization, Other)
  Sender: FDA-Public Use
  Company Number: JP_050506499

PATIENT
  Age: 70 Year
  Sex: Female
  Weight: 38 kg

DRUGS (11)
  1. ZYPREXA [Suspect]
     Indication: SCHIZOPHRENIA
     Dosage: 10 MG DAILY (1/D) ORAL
     Route: 048
     Dates: start: 20010914, end: 20050119
  2. DOGMATYL (SULPIRIDE) [Concomitant]
  3. AKINETON [Concomitant]
  4. PYRETHIA (PROMETHAZINE HYDROCHLORIDE) [Concomitant]
  5. PANTETHINE [Concomitant]
  6. MAGNESIUM OXIDE [Concomitant]
  7. PROTOPORPHYRIN DISODIUM [Concomitant]
  8. MIDODRINE HCL [Concomitant]
  9. ETILEFRINE HYDROCHLORIDE [Concomitant]
  10. YODEL (SENNA ALEXANDRINA) [Concomitant]
  11. RESLART (CETRAXATE HYDROCHLORIDE) [Concomitant]

REACTIONS (9)
  - CARDIAC FAILURE [None]
  - CARDIOMEGALY [None]
  - DYSKINESIA [None]
  - DYSTONIA [None]
  - ELECTROCARDIOGRAM QT CORRECTED INTERVAL PROLONGED [None]
  - HYPOKALAEMIA [None]
  - LYMPHOMA [None]
  - OEDEMA [None]
  - VENTRICULAR EXTRASYSTOLES [None]
